FAERS Safety Report 7944411-6 (Version None)
Quarter: 2011Q4

REPORT INFORMATION
  Report Type: 
  Country: None (occurrence: None)
  Receive Date: 20111129
  Receipt Date: 20111128
  Transmission Date: 20120403
  Serious: No
  Sender: FDA-Public Use
  Company Number: US-BIOGENIDEC-2011BI045012

PATIENT
  Age: 46 Year
  Sex: Female

DRUGS (2)
  1. TYSABRI [Suspect]
     Route: 042
     Dates: start: 20110601, end: 20110930
  2. TYSABRI [Suspect]
     Indication: MULTIPLE SCLEROSIS
     Route: 042
     Dates: start: 20101130, end: 20110607

REACTIONS (3)
  - PAIN IN EXTREMITY [None]
  - GAIT DISTURBANCE [None]
  - NAUSEA [None]
